FAERS Safety Report 11347646 (Version 1)
Quarter: 2015Q3

REPORT INFORMATION
  Report Type: Spontaneous
  Country: US (occurrence: US)
  Receive Date: 20150803
  Receipt Date: 20150803
  Transmission Date: 20151125
  Serious: Yes (Other)
  Sender: FDA-Public Use
  Company Number: US-ELI_LILLY_AND_COMPANY-US201109001187

PATIENT
  Sex: Female

DRUGS (2)
  1. ZYPREXA [Suspect]
     Active Substance: OLANZAPINE
     Indication: BIPOLAR I DISORDER
     Dosage: UNK
  2. ZYPREXA [Suspect]
     Active Substance: OLANZAPINE
     Dosage: 10 MG, BID

REACTIONS (9)
  - Increased appetite [Unknown]
  - Constipation [Unknown]
  - Amnesia [Recovered/Resolved]
  - Fatigue [Unknown]
  - Weight increased [Unknown]
  - Dizziness [Unknown]
  - Pain in extremity [Unknown]
  - Tremor [Unknown]
  - Dry mouth [Unknown]
